FAERS Safety Report 4320066-7 (Version None)
Quarter: 2004Q1

REPORT INFORMATION
  Report Type: 
  Country: None (occurrence: None)
  Receive Date: 20040317
  Receipt Date: 20040302
  Transmission Date: 20041129
  Serious: Yes (Other)
  Sender: FDA-Public Use
  Company Number: 8004817

PATIENT
  Age: 69 Year
  Sex: Female

DRUGS (6)
  1. KEPPRA [Suspect]
     Indication: CONVULSION
     Dosage: 1000 MG PO
     Route: 048
     Dates: start: 20030417, end: 20030501
  2. KEPPRA [Suspect]
     Indication: CONVULSION
     Dosage: 750 MG PO
     Route: 048
     Dates: start: 20030501, end: 20030419
  3. KEPPRA [Suspect]
     Indication: CONVULSION
     Dosage: 250 MG 2/D PO
     Route: 048
     Dates: start: 20030820, end: 20030908
  4. KEPPRA [Suspect]
     Indication: CONVULSION
     Dosage: 375 MG PO
     Route: 048
     Dates: start: 20030909, end: 20031201
  5. KEPPRA [Suspect]
     Indication: CONVULSION
     Dosage: 125 MG PO
     Route: 048
     Dates: start: 20031201, end: 20031219
  6. NIASPAN [Concomitant]

REACTIONS (5)
  - DIZZINESS POSTURAL [None]
  - GAIT DISTURBANCE [None]
  - PAIN IN EXTREMITY [None]
  - PANCREATIC DUCT OBSTRUCTION [None]
  - SENSORY DISTURBANCE [None]
